FAERS Safety Report 6145590-6 (Version None)
Quarter: 2009Q2

REPORT INFORMATION
  Report Type: 
  Country: None (occurrence: None)
  Receive Date: 20090407
  Receipt Date: 20090401
  Transmission Date: 20091009
  Serious: Yes (Hospitalization, Disabling, Other)
  Sender: FDA-Public Use
  Company Number: GR-PFIZER INC-2008049473

PATIENT

DRUGS (1)
  1. SUNITINIB MALATE [Suspect]
     Indication: RENAL CELL CARCINOMA
     Dosage: 50 MG 1 X DAY
     Route: 048
     Dates: start: 20080312, end: 20080520

REACTIONS (2)
  - POLYNEUROPATHY [None]
  - SENSORIMOTOR DISORDER [None]
